FAERS Safety Report 8177941-5 (Version None)
Quarter: 2012Q1

REPORT INFORMATION
  Report Type: 
  Country: None (occurrence: None)
  Receive Date: 20120130
  Receipt Date: 20110309
  Transmission Date: 20120608
  Serious: Yes (Hospitalization, Other)
  Sender: FDA-Public Use
  Company Number: 028995

PATIENT
  Sex: Male

DRUGS (16)
  1. SERTRALINE HYDROCHLORIDE [Concomitant]
  2. LISINOPRIL [Concomitant]
  3. GABAPENTIN [Concomitant]
  4. QUETIAPINE [Concomitant]
  5. B COMPLEX WITH VITAMIN C [Concomitant]
  6. VITAMIN D [Concomitant]
  7. M.V.I. [Concomitant]
  8. KEPPRA [Suspect]
     Indication: CONVULSION
     Dosage: (1000 MG BID ORAL)
     Route: 048
     Dates: start: 20100901
  9. ETODOLAC [Concomitant]
  10. VICODIN [Concomitant]
  11. FOLIC ACID [Concomitant]
  12. OMEPRAZOLE [Concomitant]
  13. FNIASTERIDE [Concomitant]
  14. MIRTAZAPINE [Concomitant]
  15. TERAZOSIN HCL [Concomitant]
  16. METOPROLOL SUCCINATE [Concomitant]

REACTIONS (2)
  - DYSPHEMIA [None]
  - AMNESIA [None]
